FAERS Safety Report 23302293 (Version 1)
Quarter: 2023Q4

REPORT INFORMATION
  Report Type: Spontaneous
  Country: US (occurrence: US)
  Receive Date: 20231215
  Receipt Date: 20231215
  Transmission Date: 20240109
  Serious: No
  Sender: FDA-Public Use
  Company Number: US-HALEON-USCH2023061057

PATIENT
  Age: 26 Year
  Sex: Male

DRUGS (2)
  1. NICOTINE [Suspect]
     Active Substance: NICOTINE
     Indication: Nicotine dependence
     Dosage: 1 DF
  2. NICORETTE [Suspect]
     Active Substance: NICOTINE
     Indication: Nicotine dependence
     Dosage: 1 DF

REACTIONS (1)
  - Abdominal pain upper [Unknown]
